FAERS Safety Report 24194315 (Version 2)
Quarter: 2024Q3

REPORT INFORMATION
  Report Type: Report from Study
  Country: US (occurrence: US)
  Receive Date: 20240809
  Receipt Date: 20240830
  Transmission Date: 20241016
  Serious: Yes (Hospitalization, Other)
  Sender: AEGERION
  Company Number: US-AMRYT PHARMACEUTICALS DAC-AEGR007306

PATIENT

DRUGS (13)
  1. JUXTAPID [Suspect]
     Active Substance: LOMITAPIDE MESYLATE
     Indication: Product used for unknown indication
     Dosage: 20 MILLIGRAM, QD, HS
  2. ZETIA [Concomitant]
     Active Substance: EZETIMIBE
     Indication: Product used for unknown indication
  3. VITAMIN D3 [Concomitant]
     Active Substance: CHOLECALCIFEROL
     Indication: Product used for unknown indication
     Dosage: 10 MCG, CAPSULE
     Dates: end: 20240808
  4. VITAMINS [Concomitant]
     Active Substance: VITAMINS
     Indication: Product used for unknown indication
     Dosage: CAPSULE
  5. PAIN RELIEF NOS [Concomitant]
     Active Substance: UNSPECIFIED INGREDIENT
     Indication: Product used for unknown indication
     Dosage: 4% ADH PATCH
  6. ASPIRIN [Concomitant]
     Active Substance: ASPIRIN
     Indication: Product used for unknown indication
     Dosage: 81 MILLIGRAM, EC, TABLET, DR
  7. METOPROLOL SUCCINATE [Concomitant]
     Active Substance: METOPROLOL SUCCINATE
     Indication: Product used for unknown indication
     Dosage: 25 MILLIGRAM, TAB, ER, 24H
  8. FERROUS SULFATE [Concomitant]
     Active Substance: FERROUS SULFATE
     Indication: Product used for unknown indication
     Dosage: 325 (65) MILLIGRAM, TABLET
  9. CRESTOR [Concomitant]
     Active Substance: ROSUVASTATIN CALCIUM
     Indication: Product used for unknown indication
     Dosage: 40 MILLIGRAM, TABLET
  10. PRASUGREL HYDROCHLORIDE [Concomitant]
     Active Substance: PRASUGREL HYDROCHLORIDE
     Indication: Product used for unknown indication
     Dosage: 10 MILLIGRAM, TABLET
  11. FISH OIL [Concomitant]
     Active Substance: FISH OIL
     Indication: Product used for unknown indication
     Dosage: 1000 MILLIGRAM, CAPSULE
  12. VITAMIN E [Concomitant]
     Active Substance: .ALPHA.-TOCOPHEROL
     Indication: Product used for unknown indication
     Dosage: 100% LIQUID
  13. TRILIPIX [Concomitant]
     Active Substance: FENOFIBRIC ACID
     Indication: Product used for unknown indication
     Dosage: 135 MILLIGRAM, CAPSULE DR

REACTIONS (2)
  - Angina pectoris [Unknown]
  - Unevaluable event [Unknown]

NARRATIVE: CASE EVENT DATE: 20240712
